FAERS Safety Report 7623789-7 (Version None)
Quarter: 2011Q3

REPORT INFORMATION
  Report Type: 
  Country: None (occurrence: None)
  Receive Date: 20110719
  Receipt Date: 20110719
  Transmission Date: 20111222
  Serious: Yes (Other)
  Sender: FDA-Public Use
  Company Number: None

PATIENT
  Sex: Male
  Weight: 61.4 kg

DRUGS (1)
  1. COLCRYS [Suspect]
     Indication: GOUT
     Dosage: 1 0.6 MG TABLET TWICE DAILY MOUTH
     Route: 048
     Dates: start: 20101130, end: 20110509

REACTIONS (3)
  - WEIGHT DECREASED [None]
  - DIARRHOEA [None]
  - PRODUCT SUBSTITUTION ISSUE [None]
